FAERS Safety Report 15499808 (Version 1)
Quarter: 2018Q4

REPORT INFORMATION
  Report Type: Spontaneous
  Country: US (occurrence: US)
  Receive Date: 20181008
  Receipt Date: 20181008
  Transmission Date: 20190205
  Serious: Yes (Death, Hospitalization)
  Sender: FDA-Public Use
  Company Number: None

PATIENT
  Age: 52 Year
  Sex: Female
  Weight: 75.5 kg

DRUGS (1)
  1. IBRANCE [Suspect]
     Active Substance: PALBOCICLIB
     Indication: BREAST CANCER METASTATIC
     Route: 048
     Dates: start: 20180531, end: 20180718

REACTIONS (4)
  - Gastrointestinal oedema [None]
  - Ascites [None]
  - Biliary dilatation [None]
  - Acute hepatic failure [None]

NARRATIVE: CASE EVENT DATE: 20180903
